FAERS Safety Report 15580672 (Version 1)
Quarter: 2018Q4

REPORT INFORMATION
  Report Type: Spontaneous
  Country: GB (occurrence: GB)
  Receive Date: 20181102
  Receipt Date: 20181102
  Transmission Date: 20190205
  Serious: Yes (Other)
  Sender: FDA-Public Use
  Company Number: GB-TEVA-2018-GB-971199

PATIENT
  Age: 68 Year
  Sex: Female
  Weight: 65.77 kg

DRUGS (2)
  1. TEVA UK ANASTROZOLE [Suspect]
     Active Substance: ANASTROZOLE
     Indication: BREAST CANCER
     Route: 048
     Dates: start: 20171230, end: 20180610
  2. XALATAN [Concomitant]
     Active Substance: LATANOPROST

REACTIONS (8)
  - Influenza like illness [Unknown]
  - Oropharyngeal pain [Unknown]
  - Pain [Unknown]
  - Malaise [Recovered/Resolved]
  - Depression [Recovered/Resolved]
  - Social avoidant behaviour [Recovered/Resolved]
  - Arthralgia [Unknown]
  - Fatigue [Recovered/Resolved]

NARRATIVE: CASE EVENT DATE: 201801
